FAERS Safety Report 7339434-4 (Version None)
Quarter: 2011Q1

REPORT INFORMATION
  Report Type: 
  Country: None (occurrence: None)
  Receive Date: 20110308
  Receipt Date: 20101228
  Transmission Date: 20110831
  Serious: No
  Sender: FDA-Public Use
  Company Number: US-AMGEN-USASP2010012142

PATIENT
  Sex: Female

DRUGS (15)
  1. SYNTHROID [Concomitant]
  2. PROLIA [Suspect]
     Indication: OSTEOPOROSIS POSTMENOPAUSAL
     Dosage: 60 MG, Q6MO
     Dates: start: 20101223
  3. ALLEGRA [Concomitant]
  4. MULTIVITAMIN                       /00097801/ [Concomitant]
  5. PROTONIX [Concomitant]
  6. DOXEPIN [Concomitant]
  7. EFFEXOR [Concomitant]
  8. INDAPAMIDE [Concomitant]
  9. CALCIUM +D [Concomitant]
  10. SYMBICORT [Concomitant]
  11. ASTELIN                            /00085801/ [Concomitant]
  12. MAXALT                             /01406501/ [Concomitant]
  13. SINGULAIR [Concomitant]
  14. MOBIC [Concomitant]
  15. NASONEX [Concomitant]

REACTIONS (1)
  - URINARY TRACT INFECTION [None]
